FAERS Safety Report 4851041-1 (Version None)
Quarter: 2005Q4

REPORT INFORMATION
  Report Type: 
  Country: None (occurrence: None)
  Receive Date: 20051212
  Receipt Date: 20030605
  Transmission Date: 20060501
  Serious: Yes (Hospitalization)
  Sender: FDA-Public Use
  Company Number: US-MERCK-0306USA00635

PATIENT
  Age: 51 Year
  Sex: Female
  Weight: 55 kg

DRUGS (1)
  1. VIOXX [Suspect]
     Indication: OSTEOARTHRITIS
     Route: 048
     Dates: start: 20010109, end: 20010601

REACTIONS (27)
  - ACUTE PSYCHOSIS [None]
  - ANXIETY [None]
  - ASTHENIA [None]
  - BRONCHITIS [None]
  - CARDIOVASCULAR DISORDER [None]
  - DEPRESSION [None]
  - DIABETES MELLITUS [None]
  - DYSPNOEA [None]
  - FAECALOMA [None]
  - FALL [None]
  - HEADACHE [None]
  - HERPES ZOSTER [None]
  - HIATUS HERNIA [None]
  - HYPERTENSION [None]
  - HYPOKALAEMIA [None]
  - LOBAR PNEUMONIA [None]
  - OSTEOARTHRITIS [None]
  - PANIC ATTACK [None]
  - PANIC DISORDER [None]
  - PNEUMONIA [None]
  - PRODUCTIVE COUGH [None]
  - SCHIZOPHRENIA, PARANOID TYPE [None]
  - SINUS BRADYCARDIA [None]
  - SUPRAVENTRICULAR TACHYCARDIA [None]
  - SWELLING [None]
  - VISION BLURRED [None]
  - VOMITING [None]
